FAERS Safety Report 8244275-X (Version None)
Quarter: 2012Q1

REPORT INFORMATION
  Report Type: 
  Country: None (occurrence: None)
  Receive Date: 20120329
  Receipt Date: 20120322
  Transmission Date: 20120608
  Serious: Yes (Death, Hospitalization)
  Sender: FDA-Public Use
  Company Number: US-ACTELION-A-NJ2012-59445

PATIENT

DRUGS (5)
  1. REVATIO [Concomitant]
  2. COUMADIN [Concomitant]
  3. LASIX [Concomitant]
  4. TRACLEER [Suspect]
     Indication: PULMONARY ARTERIAL HYPERTENSION
     Dosage: UNK
     Route: 048
     Dates: start: 20080408, end: 20120310
  5. BETA BLOCKING AGENTS [Concomitant]

REACTIONS (6)
  - RETCHING [None]
  - PULMONARY HYPERTENSION [None]
  - HEART RATE INCREASED [None]
  - REGURGITATION [None]
  - DYSPNOEA [None]
  - DISEASE PROGRESSION [None]
